FAERS Safety Report 20012011 (Version 1)
Quarter: 2021Q4

REPORT INFORMATION
  Report Type: Spontaneous
  Country: DE (occurrence: DE)
  Receive Date: 20211029
  Receipt Date: 20211029
  Transmission Date: 20220303
  Serious: No
  Sender: FDA-Public Use
  Company Number: DE-UCBSA-2021051252

PATIENT

DRUGS (2)
  1. NEUPRO [Suspect]
     Active Substance: ROTIGOTINE
     Indication: Product used for unknown indication
     Dosage: 2MG
  2. NEUPRO [Suspect]
     Active Substance: ROTIGOTINE
     Dosage: 3MG

REACTIONS (1)
  - Product adhesion issue [Unknown]
